FAERS Safety Report 5497650-0 (Version None)
Quarter: 2007Q4

REPORT INFORMATION
  Report Type: 
  Country: None (occurrence: None)
  Receive Date: 20071025
  Receipt Date: 20071011
  Transmission Date: 20080405
  Serious: Yes (Death, Hospitalization)
  Sender: FDA-Public Use
  Company Number: TW-RANBAXY-2007RR-10606

PATIENT

DRUGS (1)
  1. CIPROFLOXACIN 750 MG FILM-COATED TABLETS [Suspect]
     Indication: URINARY TRACT INFECTION

REACTIONS (1)
  - OSTEOMYELITIS [None]
